FAERS Safety Report 5903693-2 (Version None)
Quarter: 2008Q3

REPORT INFORMATION
  Report Type: 
  Country: None (occurrence: None)
  Receive Date: 20080930
  Receipt Date: 20080926
  Transmission Date: 20090109
  Serious: Yes (Death)
  Sender: FDA-Public Use
  Company Number: IT-SANOFI-SYNTHELABO-F01200701769

PATIENT

DRUGS (3)
  1. CAPECITABINE [Suspect]
     Route: 065
  2. OXALIPLATIN [Suspect]
     Indication: COLORECTAL CANCER METASTATIC
     Route: 065
  3. IRINOTECAN HCL [Suspect]
     Route: 065

REACTIONS (2)
  - DIARRHOEA [None]
  - SEPSIS [None]
